FAERS Safety Report 8074937-9 (Version None)
Quarter: 2012Q1

REPORT INFORMATION
  Report Type: 
  Country: None (occurrence: None)
  Receive Date: 20120127
  Receipt Date: 20120116
  Transmission Date: 20120608
  Serious: Yes (Other)
  Sender: FDA-Public Use
  Company Number: BR-AMGEN-BRASP2012003813

PATIENT
  Age: 53 Year
  Sex: Female
  Weight: 63 kg

DRUGS (8)
  1. ASPIRIN [Concomitant]
     Dosage: UNK
  2. CALCIUM [Concomitant]
     Dosage: UNK
  3. HYDROCHLOROTHIAZIDE [Concomitant]
     Dosage: UNK
  4. PREDNISONE TAB [Concomitant]
     Dosage: UNK
  5. ARAVA [Concomitant]
     Dosage: UNK
  6. RALOXIFENE HCL [Concomitant]
     Dosage: UNK
  7. ENBREL [Suspect]
     Indication: RHEUMATOID ARTHRITIS
     Dosage: 50 MG, 1X/WEEK
     Route: 058
     Dates: start: 20100531, end: 20111101
  8. CAPTOPRIL [Concomitant]
     Dosage: UNK

REACTIONS (1)
  - ARTHROPATHY [None]
